FAERS Safety Report 9733574 (Version 2)
Quarter: 2014Q1

REPORT INFORMATION
  Report Type: Spontaneous
  Country: DE (occurrence: DE)
  Receive Date: 20131205
  Receipt Date: 20140225
  Transmission Date: 20141002
  Serious: Yes (Death, Hospitalization, Other)
  Sender: FDA-Public Use
  Company Number: DE-INCYTE CORPORATION-2013IN002859

PATIENT
  Age: 37 Year
  Sex: Female

DRUGS (3)
  1. JAKAVI [Suspect]
     Indication: MYELOFIBROSIS
     Dosage: 15 MG/DAY (10 IN MORNING AND 15 IN EVENING)
     Route: 048
     Dates: start: 20121011, end: 20131124
  2. CARVEDILOL [Concomitant]
     Dosage: UNK
     Dates: start: 20130301
  3. L-THYROXIN [Concomitant]

REACTIONS (2)
  - Subarachnoid haemorrhage [Fatal]
  - Thrombocytosis [Unknown]
